FAERS Safety Report 11461027 (Version 2)
Quarter: 2015Q3

REPORT INFORMATION
  Report Type: Spontaneous
  Country: ES (occurrence: ES)
  Receive Date: 20150904
  Receipt Date: 20150909
  Transmission Date: 20151125
  Serious: Yes (Other)
  Sender: FDA-Public Use
  Company Number: ES-SA-2015SA132167

PATIENT
  Age: 75 Year
  Sex: Male

DRUGS (5)
  1. FLUCONAZOLE. [Concomitant]
     Active Substance: FLUCONAZOLE
     Indication: ANTIFUNGAL PROPHYLAXIS
     Route: 048
  2. ALEMTUZUMAB [Suspect]
     Active Substance: ALEMTUZUMAB
     Indication: MYCOSIS FUNGOIDES
     Dosage: INITIAL DOSE OF 3 MG, ESCALATED TO 10 MG 3 X/WEEK
     Route: 058
  3. TRIMETHOPRIM/SULFAMETHOXAZOLE [Concomitant]
     Indication: ANTIFUNGAL PROPHYLAXIS
     Route: 048
  4. ACYCLOVIR. [Concomitant]
     Active Substance: ACYCLOVIR
     Indication: ANTIVIRAL PROPHYLAXIS
     Route: 048
  5. VALGANCICLOVIR [Concomitant]
     Active Substance: VALGANCICLOVIR
     Indication: PROPHYLAXIS

REACTIONS (3)
  - Cytokine release syndrome [Unknown]
  - Cytomegalovirus infection [Unknown]
  - Off label use [Unknown]
